FAERS Safety Report 9588191 (Version 1)
Quarter: 2013Q4

REPORT INFORMATION
  Report Type: Spontaneous
  Country: US (occurrence: US)
  Receive Date: 20131003
  Receipt Date: 20131003
  Transmission Date: 20140711
  Serious: No
  Sender: FDA-Public Use
  Company Number: US-AMGEN-USASP2012063428

PATIENT
  Age: 52 Year
  Sex: Male

DRUGS (1)
  1. ENBREL [Suspect]
     Indication: PSORIASIS
     Dosage: 50 MG, 2 TIMES/WK
     Dates: start: 20120603, end: 201208

REACTIONS (4)
  - Night sweats [Recovered/Resolved]
  - Cough [Recovered/Resolved]
  - Adverse event [Recovered/Resolved]
  - Injection site pain [Recovered/Resolved]
